FAERS Safety Report 9841106 (Version 1)
Quarter: 2013Q4

REPORT INFORMATION
  Report Type: Spontaneous
  Country: US (occurrence: None)
  Receive Date: 20131219
  Receipt Date: 20131219
  Transmission Date: 20140711
  Serious: Yes (Death)
  Sender: FDA-Public Use
  Company Number: 163-20785-12091630

PATIENT
  Age: 75 Year
  Sex: Male

DRUGS (3)
  1. THALOMID [Suspect]
     Indication: PLASMA CELL MYELOMA
     Route: 048
     Dates: start: 20120702
  2. VELCADE (BORTEZOMIB) [Concomitant]
  3. DECADRON (DEXAMETHASONE) [Concomitant]

REACTIONS (1)
  - Hearing impaired [None]
